FAERS Safety Report 9119291 (Version 1)
Quarter: 2013Q1

REPORT INFORMATION
  Report Type: Spontaneous
  Country: US (occurrence: None)
  Receive Date: 20130221
  Receipt Date: 20130221
  Transmission Date: 20140127
  Serious: Yes (Other)
  Sender: FDA-Public Use
  Company Number: None

PATIENT
  Age: 50 Year
  Sex: Female
  Weight: 68.04 kg

DRUGS (1)
  1. BONIVA [Suspect]
     Dosage: 150 MG 1 MONTHLY BUCCAL
     Route: 002
     Dates: start: 20111104, end: 20111104

REACTIONS (11)
  - Fatigue [None]
  - Abdominal pain upper [None]
  - Bone pain [None]
  - Oesophageal pain [None]
  - Influenza like illness [None]
  - Muscle spasms [None]
  - Dysphonia [None]
  - Pain in jaw [None]
  - Oropharyngeal pain [None]
  - Trismus [None]
  - Oropharyngeal pain [None]
